FAERS Safety Report 5880222-3 (Version None)
Quarter: 2008Q3

REPORT INFORMATION
  Report Type: 
  Country: None (occurrence: None)
  Receive Date: 20080912
  Receipt Date: 20080904
  Transmission Date: 20090109
  Serious: Yes (Other)
  Sender: FDA-Public Use
  Company Number: JP-ABBOTT-08P-087-0473039-00

PATIENT
  Age: 19 Year
  Sex: Female
  Weight: 43 kg

DRUGS (4)
  1. CLARITHROMYCIN [Suspect]
     Indication: ANTIBIOTIC PROPHYLAXIS
     Dosage: NOT REPORTED
  2. PHENOBARBITAL TAB [Suspect]
     Indication: EPILEPSY
     Dosage: NOT REPORTED
     Route: 065
     Dates: start: 20070110, end: 20070202
  3. VALPROATE SODIUM [Suspect]
     Indication: EPILEPSY
     Dosage: NOT REPORTED
     Route: 042
     Dates: end: 20070110
  4. VALPROATE SODIUM [Suspect]
     Route: 042
     Dates: start: 20070202

REACTIONS (3)
  - RASH [None]
  - SJOGREN'S SYNDROME [None]
  - SYSTEMIC LUPUS ERYTHEMATOSUS [None]
